FAERS Safety Report 9544247 (Version 1)
Quarter: 2013Q3

REPORT INFORMATION
  Report Type: Spontaneous
  Country: IT (occurrence: IT)
  Receive Date: 20130923
  Receipt Date: 20130923
  Transmission Date: 20140515
  Serious: Yes (Other)
  Sender: FDA-Public Use
  Company Number: IT-MERCK-1303ITA009659

PATIENT
  Age: 22 Year
  Sex: Female

DRUGS (2)
  1. TRIMETON [Suspect]
  2. REMICADE [Suspect]
     Indication: CROHN^S DISEASE
     Dosage: 200MG CYCLICAL
     Route: 042
     Dates: start: 20130306, end: 20130306

REACTIONS (3)
  - Respiratory failure [Recovered/Resolved]
  - Rash [Recovered/Resolved]
  - Urticaria [Recovered/Resolved]
